FAERS Safety Report 4335959-4 (Version None)
Quarter: 2004Q2

REPORT INFORMATION
  Report Type: 
  Country: None (occurrence: None)
  Receive Date: 20040406
  Receipt Date: 20030930
  Transmission Date: 20050107
  Serious: Yes (Other)
  Sender: FDA-Public Use
  Company Number: JP-SHR-03-012570

PATIENT
  Age: 59 Year
  Sex: Female
  Weight: 42 kg

DRUGS (10)
  1. FERIDEX I.V. [Suspect]
     Indication: NUCLEAR MAGNETIC RESONANCE IMAGING
     Dosage: 5 ML, 1 DOSE, INTRAVENOUS
     Route: 042
     Dates: start: 20030704, end: 20030704
  2. PELTAZON (PENTAZOCIE) [Suspect]
     Indication: CANCER PAIN
     Dosage: SEE IMAGE
     Route: 048
     Dates: start: 20030714, end: 20030716
  3. PELTAZON (PENTAZOCIE) [Suspect]
     Indication: CANCER PAIN
     Dosage: SEE IMAGE
     Route: 048
     Dates: start: 20040724, end: 20040724
  4. DOGMATYL [Concomitant]
  5. DIAZEPAM [Concomitant]
  6. MILNACIPRAN HYDROCHLORIDE (MILNACIPRAN HYDROCHLORIDE) [Concomitant]
  7. SILECE (FLUNITRAZEPAM) [Concomitant]
  8. LAC B (LACTOCBACILLUS BIFIDUS, LYOPHILIZED) [Concomitant]
  9. RED BLOOD CELLS [Concomitant]
  10. PLASMA, FRESH FROZEN (PLASMA PROTEIN IFRANCTION (HUMAN)) [Concomitant]

REACTIONS (2)
  - LIVER FUNCTION TEST ABNORMAL [None]
  - RASH PRURITIC [None]
